FAERS Safety Report 5801132-3 (Version None)
Quarter: 2008Q3

REPORT INFORMATION
  Report Type: 
  Country: None (occurrence: None)
  Receive Date: 20080707
  Receipt Date: 20080625
  Transmission Date: 20090109
  Serious: Yes (Other)
  Sender: FDA-Public Use
  Company Number: PHHY2008PH09692

PATIENT
  Sex: Male

DRUGS (2)
  1. EXFORGE [Suspect]
     Indication: HYPERTENSION
     Dosage: 80/5 MG/DAY
  2. METFORMIN HCL [Concomitant]

REACTIONS (2)
  - ASTHMA [None]
  - DYSPNOEA [None]
